FAERS Safety Report 17788663 (Version 8)
Quarter: 2025Q4

REPORT INFORMATION
  Report Type: Spontaneous
  Country: US (occurrence: US)
  Receive Date: 20200515
  Receipt Date: 20251217
  Transmission Date: 20260117
  Serious: No
  Sender: NOVARTIS
  Company Number: None

PATIENT
  Sex: Female

DRUGS (3)
  1. TRAVATAN Z [Suspect]
     Active Substance: TRAVOPROST
     Indication: Product used for unknown indication
     Dosage: 0.004 MG
     Route: 065
  2. TRAVATAN Z [Suspect]
     Active Substance: TRAVOPROST
     Dosage: UNK
     Route: 065
  3. TRAVATAN Z [Suspect]
     Active Substance: TRAVOPROST
     Dosage: UNK (.004% 2.5ML  )
     Route: 065

REACTIONS (5)
  - Mood altered [Unknown]
  - Product dose omission issue [Unknown]
  - Product dispensing error [Unknown]
  - Product colour issue [Unknown]
  - Product packaging quantity issue [Unknown]
